FAERS Safety Report 7474500-4 (Version None)
Quarter: 2011Q2

REPORT INFORMATION
  Report Type: 
  Country: None (occurrence: None)
  Receive Date: 20110512
  Receipt Date: 20110503
  Transmission Date: 20111010
  Serious: Yes (Death, Other)
  Sender: FDA-Public Use
  Company Number: US-BIOGENIDEC-2008BI034781

PATIENT
  Age: 51 Year
  Sex: Female

DRUGS (2)
  1. TYSABRI [Suspect]
     Indication: MULTIPLE SCLEROSIS
     Route: 042
     Dates: start: 20071018, end: 20081020
  2. TYSABRI [Suspect]
     Dates: start: 20070208, end: 20070308

REACTIONS (3)
  - SEPSIS [None]
  - PROCEDURAL COMPLICATION [None]
  - ABDOMINAL HERNIA [None]
